FAERS Safety Report 5515286-X (Version None)
Quarter: 2007Q4

REPORT INFORMATION
  Report Type: 
  Country: None (occurrence: None)
  Receive Date: 20071113
  Receipt Date: 20071108
  Transmission Date: 20080405
  Serious: Yes (Hospitalization)
  Sender: FDA-Public Use
  Company Number: GB-ROXANE LABORATORIES, INC-2007-DE-06665GD

PATIENT
  Age: 15 Year
  Sex: Female
  Weight: 48 kg

DRUGS (4)
  1. PARACETAMOL [Suspect]
     Route: 048
  2. N-ACETYLCYSTEINE [Suspect]
     Indication: OVERDOSE
     Dosage: 150 MG/KG OVER 15 MIN, THEN 50 MG/KG OVER 4 H, THEN 100 MG/KG OVER 16 H
     Route: 042
  3. SERTRALINE [Suspect]
  4. DEXTROSE [Suspect]
     Indication: OVERDOSE
     Dosage: 1700 ML OF 5%
     Route: 042

REACTIONS (3)
  - HYPOKALAEMIA [None]
  - OVERDOSE [None]
  - VOMITING [None]
